FAERS Safety Report 7548329-2 (Version None)
Quarter: 2011Q2

REPORT INFORMATION
  Report Type: 
  Country: None (occurrence: None)
  Receive Date: 20110615
  Receipt Date: 20110610
  Transmission Date: 20111010
  Serious: No
  Sender: FDA-Public Use
  Company Number: US-PFIZER INC-2011085827

PATIENT
  Age: 66 Year
  Sex: Female
  Weight: 117.07 kg

DRUGS (7)
  1. DEPO-MEDROL [Suspect]
     Indication: PAIN
     Dosage: UNK
  2. ZEGERID [Concomitant]
     Indication: GASTROOESOPHAGEAL REFLUX DISEASE
     Dosage: 40 MG, 2X/DAY
  3. DEPO-MEDROL [Suspect]
     Indication: ARTHRITIS
  4. SKELAXIN [Concomitant]
     Indication: FIBROMYALGIA
     Dosage: 400 - 1600 MG
  5. TOPROL-XL [Concomitant]
     Indication: BLOOD PRESSURE ABNORMAL
     Dosage: 50 MG, 1X/DAY
     Route: 048
  6. SYNTHROID [Concomitant]
     Indication: THYROID DISORDER
     Dosage: 0.2 MG, 1X/DAY
  7. CELEBREX [Concomitant]
     Indication: ARTHRITIS
     Dosage: 200 MG, 2X/DAY
     Route: 048

REACTIONS (4)
  - ERYTHEMA [None]
  - BLOOD PRESSURE INCREASED [None]
  - PAIN [None]
  - RASH [None]
